FAERS Safety Report 7950616-0 (Version None)
Quarter: 2011Q4

REPORT INFORMATION
  Report Type: 
  Country: None (occurrence: None)
  Receive Date: 20111130
  Receipt Date: 20111129
  Transmission Date: 20120403
  Serious: Yes (Hospitalization, Other)
  Sender: FDA-Public Use
  Company Number: US-ROCHE-527260

PATIENT
  Sex: Male
  Weight: 83.9 kg

DRUGS (1)
  1. ACCUTANE [Suspect]
     Indication: ACNE
     Route: 065
     Dates: start: 20000118, end: 20000613

REACTIONS (14)
  - ANAL ABSCESS [None]
  - SCROTAL SWELLING [None]
  - INFLAMMATORY BOWEL DISEASE [None]
  - ATTENTION DEFICIT/HYPERACTIVITY DISORDER [None]
  - RECTAL POLYP [None]
  - EOSINOPHILIC OESOPHAGITIS [None]
  - ANAL FISTULA [None]
  - RECTAL ULCER [None]
  - SPINAL DEFORMITY [None]
  - PHARYNGITIS [None]
  - CROHN'S DISEASE [None]
  - MIGRAINE [None]
  - FRACTURE NONUNION [None]
  - ECZEMA ASTEATOTIC [None]
